FAERS Safety Report 5226262-9 (Version None)
Quarter: 2007Q1

REPORT INFORMATION
  Report Type: 
  Country: None (occurrence: None)
  Receive Date: 20070201
  Receipt Date: 20070122
  Transmission Date: 20070707
  Serious: Yes (Disabling)
  Sender: FDA-Public Use
  Company Number: US-MERCK-0701USA03608

PATIENT
  Age: 60 Year
  Sex: Female

DRUGS (4)
  1. FOSAMAX [Suspect]
     Indication: OSTEOPENIA
     Route: 048
     Dates: start: 20060101
  2. ESTROGENS, CONJUGATED [Concomitant]
     Route: 065
  3. PROGESTERONE [Concomitant]
     Route: 065
  4. MINERALS (UNSPECIFIED) AND VITAMINS (UNSPECIFIED) [Concomitant]
     Route: 065

REACTIONS (4)
  - JAW DISORDER [None]
  - PAIN IN JAW [None]
  - TOOTH ABSCESS [None]
  - VIRAEMIA [None]
